FAERS Safety Report 8154248-3 (Version None)
Quarter: 2012Q1

REPORT INFORMATION
  Report Type: 
  Country: None (occurrence: None)
  Receive Date: 20120221
  Receipt Date: 20120215
  Transmission Date: 20120608
  Serious: Yes (Death, Life-Threatening, Hospitalization, Other)
  Sender: FDA-Public Use
  Company Number: IL-BAYER-2011-123297

PATIENT
  Age: 65 Year
  Sex: Female
  Weight: 61 kg

DRUGS (15)
  1. SORAFENIB (RAF KINASE INHIBITOR) [Suspect]
     Indication: BREAST CANCER
     Dosage: 400 MG + 200 MG, QD
     Route: 048
     Dates: start: 20111205, end: 20111220
  2. MEROPENEM [Concomitant]
     Dosage: DAILY DOSE 1 G
     Route: 042
     Dates: start: 20120111, end: 20120111
  3. LIPITOR [Concomitant]
     Indication: HYPERLIPIDAEMIA
     Dosage: 20 MG, QD
     Route: 048
     Dates: start: 20010101
  4. CARDILOC [Concomitant]
     Indication: HYPERTENSION
     Dosage: 25 MG, QD
     Route: 048
     Dates: start: 20040101
  5. CARDILOC [Concomitant]
     Dosage: 1.25 MG, QD
     Route: 048
     Dates: start: 20111227
  6. DEXTROSE W/POTASSIUM CHLORIDE AND NACL [Concomitant]
     Dosage: 2,500 X1
     Dates: start: 20111226
  7. GALENIC /GLUCOSE/SODIUM CL/POTASSIUM CL/ [Concomitant]
     Dosage: 2,500 X 1
     Dates: start: 20111226
  8. CARDILOC [Concomitant]
     Dosage: 25 MG, QD
     Route: 048
     Dates: start: 20111226, end: 20120108
  9. CALCIUM VIT D [Concomitant]
     Indication: SUPPLEMENTATION THERAPY
     Dosage: 600 + 25 MG, QD
     Route: 048
     Dates: start: 20111101
  10. DEXTROSE W/POTASSIUM CHLORIDE AND NACL [Concomitant]
     Dosage: 2.500 X1
     Dates: start: 20111226
  11. RAMIPRIL [Concomitant]
     Dosage: 2.5 MG, UNK
     Route: 048
     Dates: start: 20111227, end: 20120108
  12. TPN [Concomitant]
     Indication: MUCOSAL INFLAMMATION
     Dosage: 2500 ML, UNK
     Route: 042
     Dates: end: 20120101
  13. CAPECITABINE [Suspect]
     Indication: BREAST CANCER
     Dosage: 1600 G X 2
     Route: 048
     Dates: start: 20111205, end: 20111219
  14. RAMIPRIL [Concomitant]
     Indication: HYPERTENSION
     Dosage: 1.75 MG, QD
     Route: 048
     Dates: start: 20040101
  15. MEROPENEM [Concomitant]
     Indication: SEPSIS
     Dosage: 500 MG, TID
     Route: 042
     Dates: start: 20120107, end: 20120110

REACTIONS (27)
  - ATRIAL FIBRILLATION [None]
  - TRANSAMINASES INCREASED [None]
  - TACHYCARDIA [None]
  - MUCOSAL INFECTION [None]
  - INFUSION SITE THROMBOSIS [None]
  - WHITE BLOOD CELL COUNT INCREASED [None]
  - FATIGUE [None]
  - ASTERIXIS [None]
  - COMA [None]
  - ASTHENIA [None]
  - INTERNATIONAL NORMALISED RATIO INCREASED [None]
  - DIARRHOEA [None]
  - CONFUSIONAL STATE [None]
  - THROMBOCYTOPENIA [None]
  - HAEMATEMESIS [None]
  - HYPOTENSION [None]
  - VOMITING [None]
  - CHEST PAIN [None]
  - HAEMOGLOBIN DECREASED [None]
  - OLIGURIA [None]
  - HEPATIC FAILURE [None]
  - SEPSIS [None]
  - RENAL IMPAIRMENT [None]
  - RESPIRATORY DISORDER [None]
  - JAUNDICE [None]
  - CONVULSION [None]
  - OEDEMA PERIPHERAL [None]
